FAERS Safety Report 6528003-1 (Version None)
Quarter: 2010Q1

REPORT INFORMATION
  Report Type: 
  Country: None (occurrence: None)
  Receive Date: 20100106
  Receipt Date: 20100104
  Transmission Date: 20100710
  Serious: Yes (Death)
  Sender: FDA-Public Use
  Company Number: GB-SANOFI-AVENTIS-2009SA001984

PATIENT
  Age: 26 Year
  Sex: Female
  Weight: 93.1 kg

DRUGS (4)
  1. LANTUS [Suspect]
     Indication: TYPE 1 DIABETES MELLITUS
     Route: 058
     Dates: start: 20091002, end: 20091102
  2. NOVORAPID [Suspect]
     Indication: TYPE 1 DIABETES MELLITUS
     Route: 058
     Dates: start: 20091002, end: 20091102
  3. SERETIDE ^ALLEN + HANBURYS LTD^ [Concomitant]
     Dates: start: 20090119
  4. ALBUTEROL [Concomitant]
     Dates: start: 20070120

REACTIONS (1)
  - DEATH [None]
